FAERS Safety Report 21643827 (Version 1)
Quarter: 2022Q4

REPORT INFORMATION
  Report Type: Spontaneous
  Country: DE (occurrence: DE)
  Receive Date: 20221125
  Receipt Date: 20221125
  Transmission Date: 20230112
  Serious: Yes (Other)
  Sender: FDA-Public Use
  Company Number: DE-ORGANON-O2211DEU002349

PATIENT
  Sex: Male

DRUGS (2)
  1. FINASTERIDE [Suspect]
     Active Substance: FINASTERIDE
     Dosage: UNK
     Route: 048
     Dates: start: 2015, end: 2019
  2. FINASTERIDE [Suspect]
     Active Substance: FINASTERIDE
     Dosage: REDUCED THE DOSAGE
     Route: 048
     Dates: start: 2019

REACTIONS (1)
  - Sleep disorder [Recovering/Resolving]
